FAERS Safety Report 11100618 (Version 1)
Quarter: 2015Q2

REPORT INFORMATION
  Report Type: Spontaneous
  Country: US (occurrence: US)
  Receive Date: 20150508
  Receipt Date: 20150508
  Transmission Date: 20150821
  Serious: Yes (Hospitalization, Other)
  Sender: FDA-Public Use
  Company Number: US-SA-2015SA060524

PATIENT
  Sex: Female

DRUGS (3)
  1. LANTUS [Suspect]
     Active Substance: INSULIN GLARGINE
     Dosage: DOSE:25
     Route: 065
  2. HUMALOG [Suspect]
     Active Substance: INSULIN LISPRO
     Indication: TYPE 2 DIABETES MELLITUS
     Dosage: FREQUENCY:PM
     Route: 058
     Dates: start: 2000
  3. LANTUS [Suspect]
     Active Substance: INSULIN GLARGINE
     Dosage: DOSE:11
     Route: 065

REACTIONS (8)
  - Scar [Unknown]
  - Paralysis [Unknown]
  - Insulin resistance [Unknown]
  - Renal impairment [Unknown]
  - Aphasia [Unknown]
  - Blood glucose abnormal [Unknown]
  - Blood glucose increased [Unknown]
  - Blood glucose decreased [Unknown]
